FAERS Safety Report 15356877 (Version 4)
Quarter: 2020Q3

REPORT INFORMATION
  Report Type: Report from Study
  Country: FR (occurrence: FR)
  Receive Date: 20180906
  Receipt Date: 20200422
  Transmission Date: 20201104
  Serious: Yes (Other)
  Sender: FDA-Public Use
  Company Number: FR-JNJFOC-20180840241

PATIENT
  Age: 69 Year
  Sex: Male

DRUGS (6)
  1. EXFORGE [Concomitant]
     Active Substance: AMLODIPINE BESYLATE\VALSARTAN
     Indication: HYPERTENSION
     Route: 048
     Dates: end: 20180725
  2. PANTOPRAZOLE [Concomitant]
     Active Substance: PANTOPRAZOLE
     Indication: GASTROOESOPHAGEAL REFLUX DISEASE
     Route: 048
  3. PERMIXON [Concomitant]
     Active Substance: HERBALS\SAW PALMETTO
     Indication: PROSTATIC ADENOMA
     Route: 048
  4. APALUTAMIDE [Suspect]
     Active Substance: APALUTAMIDE
     Indication: PROSTATE CANCER
     Route: 048
     Dates: start: 20171130, end: 20171222
  5. APALUTAMIDE [Suspect]
     Active Substance: APALUTAMIDE
     Route: 048
     Dates: start: 20171223, end: 20180618
  6. UROREC [Concomitant]
     Active Substance: SILODOSIN
     Indication: PROSTATIC ADENOMA
     Route: 048

REACTIONS (1)
  - Ischaemic stroke [Recovered/Resolved with Sequelae]

NARRATIVE: CASE EVENT DATE: 20180730
